FAERS Safety Report 20909377 (Version 3)
Quarter: 2022Q3

REPORT INFORMATION
  Report Type: Spontaneous
  Country: US (occurrence: US)
  Receive Date: 20220603
  Receipt Date: 20220926
  Transmission Date: 20221026
  Serious: Yes (Hospitalization)
  Sender: FDA-Public Use
  Company Number: US-CYCLE PHARMACEUTICALS LTD-2022-CYC-000015

PATIENT

DRUGS (8)
  1. NITYR [Suspect]
     Active Substance: NITISINONE
     Indication: Amino acid metabolism disorder
     Dosage: 2 MG, BID
     Route: 048
  2. NITYR [Suspect]
     Active Substance: NITISINONE
     Dosage: 4 MG, BID (TAKE ONE 10 MG TABLET AND TWO 2 MG TABLET FOR A DOSE OF 14 MG TWICE A DAY)
     Route: 048
  3. NITYR [Suspect]
     Active Substance: NITISINONE
     Dosage: 6 MG, BID (FOR A DOSE OF 16 MG TWICE A DAY)
     Route: 048
  4. NITYR [Suspect]
     Active Substance: NITISINONE
     Dosage: 4 MG, BID (TAKE ONE 10 MG TABLET AND TWO 2 MG TABLET FOR A DOSE OF 14 MG TWICE A DAY)
     Route: 048
  5. NITYR [Suspect]
     Active Substance: NITISINONE
     Indication: Amino acid metabolism disorder
     Dosage: 10 MG, BID
     Route: 048
  6. NITYR [Suspect]
     Active Substance: NITISINONE
     Dosage: 10 MG, BID (TAKE ONE 10 MG TABLET AND TWO 2 MG TABLET FOR A DOSE OF 14 MG TWICE A DAY)
     Route: 048
  7. NITYR [Suspect]
     Active Substance: NITISINONE
     Dosage: 10 MG, BID (FOR A DOSE OF 16 MG TWICE A DAY)
     Route: 048
  8. NITYR [Suspect]
     Active Substance: NITISINONE
     Dosage: 10 MG, BID (TAKE ONE 10 MG TABLET AND TWO 2 MG TABLET FOR A DOSE OF 14 MG TWICE A DAY)
     Route: 048

REACTIONS (3)
  - Abdominal pain [Unknown]
  - Underdose [Unknown]
  - Liver disorder [Unknown]
